FAERS Safety Report 5897675-7 (Version None)
Quarter: 2008Q3

REPORT INFORMATION
  Report Type: 
  Country: None (occurrence: None)
  Receive Date: 20080925
  Receipt Date: 20080916
  Transmission Date: 20090109
  Serious: Yes (Hospitalization)
  Sender: FDA-Public Use
  Company Number: US-AMGEN-QUU308016

PATIENT
  Sex: Female
  Weight: 93.1 kg

DRUGS (6)
  1. ENBREL [Suspect]
     Indication: PSORIASIS
  2. INSULIN GLARGINE [Concomitant]
  3. INSULIN ASPART [Concomitant]
  4. HYDROXYZINE HYDROCHLORIDE [Concomitant]
  5. GABAPENTIN [Concomitant]
  6. ZOLPIDEM TARTRATE [Concomitant]

REACTIONS (4)
  - CELLULITIS STAPHYLOCOCCAL [None]
  - DEEP VEIN THROMBOSIS [None]
  - DRUG ADMINISTRATION ERROR [None]
  - URINARY TRACT INFECTION [None]
